FAERS Safety Report 9298086 (Version 1)
Quarter: 2013Q2

REPORT INFORMATION
  Report Type: Spontaneous
  Country: US (occurrence: US)
  Receive Date: 20130520
  Receipt Date: 20130520
  Transmission Date: 20140414
  Serious: No
  Sender: FDA-Public Use
  Company Number: US-VERTEX PHARMACEUTICALS INC-2013-006140

PATIENT
  Age: 60 Year
  Sex: Female

DRUGS (5)
  1. INCIVEK [Suspect]
     Indication: HEPATITIS C
     Dosage: UNK
     Route: 048
  2. RIBAVIRIN [Suspect]
     Indication: HEPATITIS C
     Dosage: UNK
  3. RIBAVIRIN [Suspect]
     Dosage: 600 MG, QD
  4. PEGINTERFERON [Suspect]
     Indication: HEPATITIS C
     Dosage: UNK
  5. PEGINTERFERON [Suspect]
     Dosage: 135 ?G, UNK

REACTIONS (2)
  - White blood cell count decreased [Unknown]
  - Haemoglobin decreased [Unknown]
